FAERS Safety Report 22957242 (Version 4)
Quarter: 2024Q2

REPORT INFORMATION
  Report Type: Other
  Country: GB (occurrence: None)
  Receive Date: 20230919
  Receipt Date: 20240611
  Transmission Date: 20240716
  Serious: Yes (Hospitalization, Other)
  Sender: FDA-Public Use
  Company Number: GB-ROCHE-3422962

PATIENT
  Sex: Female
  Weight: 69.8 kg

DRUGS (8)
  1. ACTEMRA [Suspect]
     Active Substance: TOCILIZUMAB
     Indication: Rheumatoid arthritis
     Route: 058
  2. ACTEMRA [Suspect]
     Active Substance: TOCILIZUMAB
     Route: 058
     Dates: start: 202310
  3. ACTEMRA [Suspect]
     Active Substance: TOCILIZUMAB
     Route: 058
     Dates: start: 20230815, end: 20240223
  4. FOLIC ACID [Concomitant]
     Active Substance: FOLIC ACID
  5. CALCIUM [Concomitant]
     Active Substance: CALCIUM
  6. ACETAMINOPHEN [Concomitant]
     Active Substance: ACETAMINOPHEN
  7. METHOTREXATE [Concomitant]
     Active Substance: METHOTREXATE
  8. OMEPRAZOLE [Concomitant]
     Active Substance: DONEPEZIL HYDROCHLORIDE\OMEPRAZOLE\OMEPRAZOLE MAGNESIUM

REACTIONS (6)
  - Diverticulitis [Recovered/Resolved]
  - Hip fracture [Recovered/Resolved]
  - Diarrhoea [Recovered/Resolved]
  - Arthritis [Recovered/Resolved]
  - Stress [Recovered/Resolved]
  - Blister [Recovered/Resolved]

NARRATIVE: CASE EVENT DATE: 20240209
